FAERS Safety Report 5534011-X (Version None)
Quarter: 2007Q4

REPORT INFORMATION
  Report Type: 
  Country: None (occurrence: None)
  Receive Date: 20071130
  Receipt Date: 20071105
  Transmission Date: 20080405
  Serious: Yes (Other)
  Sender: FDA-Public Use
  Company Number: 2007EN000274

PATIENT
  Age: 45 Year
  Sex: Female
  Weight: 68.0396 kg

DRUGS (4)
  1. OPANA [Suspect]
     Indication: PAIN IN EXTREMITY
     Dosage: 10 MG; TID; PO
     Route: 048
     Dates: start: 20071001, end: 20071104
  2. CYMBALTA [Concomitant]
  3. UNKNOWN SLEEP AID [Concomitant]
  4. MS CONTIN [Concomitant]

REACTIONS (2)
  - INTENTIONAL DRUG MISUSE [None]
  - THERAPEUTIC RESPONSE DECREASED [None]
